FAERS Safety Report 8669435 (Version 4)
Quarter: 2012Q4

REPORT INFORMATION
  Report Type: 
  Country: DE (occurrence: DE)
  Receive Date: 20120718
  Receipt Date: 20120917
  Transmission Date: 20130627
  Serious: Yes (Hospitalization, Other)
  Sender: FDA-Public Use
  Company Number: DE-AMGEN-DEUSP2012042897

PATIENT
  Age: 48 Year
  Sex: Male
  Weight: 95 kg

DRUGS (9)
  1. ENBREL [Suspect]
     Indication: RHEUMATOID ARTHRITIS
     Dosage: 50 mg, weekly
     Route: 058
     Dates: start: 20100225, end: 20110705
  2. ENBREL [Suspect]
     Dosage: UNK mg, UNK
  3. METRONIDAZOLE [Suspect]
     Dosage: UNK
  4. CEFUROXIM                          /00454602/ [Suspect]
     Dosage: UNK
  5. TORASEMIDE [Concomitant]
     Dosage: 5 UNK, 1x/day
  6. RAMIPRIL [Concomitant]
     Dosage: 2.5 UNK, 1x/day
  7. OMEP                               /00661201/ [Concomitant]
     Dosage: 40 UNK, 1x/day
  8. DICLOFENAC SODIUM [Concomitant]
     Dosage: 100 UNK, as needed
  9. PANTOZOL [Concomitant]
     Dosage: UNK

REACTIONS (18)
  - Dermatitis allergic [Recovered/Resolved]
  - Pancreatitis [Recovered/Resolved]
  - Cholelithiasis [None]
  - Cholangitis [None]
  - Cholecystitis [None]
  - Hepatic cyst [None]
  - Renal cyst haemorrhage [None]
  - Hiatus hernia [None]
  - Cardiomegaly [None]
  - Haemangioma of liver [None]
  - Blood bilirubin increased [None]
  - Gamma-glutamyltransferase increased [None]
  - Blood alkaline phosphatase increased [None]
  - Alanine aminotransferase increased [None]
  - Aspartate aminotransferase increased [None]
  - Blood urea increased [None]
  - Haemoglobin decreased [None]
  - Blood potassium decreased [None]
